FAERS Safety Report 16551146 (Version 1)
Quarter: 2019Q3

REPORT INFORMATION
  Report Type: Spontaneous
  Country: DE (occurrence: DE)
  Receive Date: 20190710
  Receipt Date: 20190710
  Transmission Date: 20191004
  Serious: Yes (Death, Hospitalization)
  Sender: FDA-Public Use
  Company Number: DE-TEVA-2019-DE-1074147

PATIENT
  Age: 94 Year
  Sex: Male

DRUGS (7)
  1. METOPROLOL. [Suspect]
     Active Substance: METOPROLOL
     Dosage: 47.5 MG, 1-0-1-0
  2. SPASMOLYT [Concomitant]
     Dosage: 30 MG, 0.5-0-0.5-0
  3. CANDESARTAN. [Suspect]
     Active Substance: CANDESARTAN
     Dosage: 8 MG, 1-0-1-0
  4. MOVICOL [Concomitant]
     Active Substance: POLYETHYLENE GLYCOL 3350\POTASSIUM CHLORIDE\SODIUM BICARBONATE\SODIUM CHLORIDE
  5. TORASEMID [Suspect]
     Active Substance: TORSEMIDE
     Dosage: 10 MG, 0.5-0-0-0
  6. CALCIUM VERLA [Concomitant]
  7. AMOXICILLIN. [Concomitant]
     Active Substance: AMOXICILLIN
     Dosage: 1000 MG, 0.5-0-0.5-0

REACTIONS (2)
  - Gait disturbance [Unknown]
  - Skin ulcer [Unknown]
